FAERS Safety Report 4430067-6 (Version None)
Quarter: 2004Q3

REPORT INFORMATION
  Report Type: 
  Country: None (occurrence: None)
  Receive Date: 20040817
  Receipt Date: 20040805
  Transmission Date: 20050211
  Serious: Yes (Death)
  Sender: FDA-Public Use
  Company Number: 914#1#2004-00023

PATIENT
  Sex: Female

DRUGS (2)
  1. VERELAN PM [Suspect]
     Dosage: 1 ONCE, ORAL
     Route: 048
     Dates: start: 20040804, end: 20040804
  2. OTHER UNSPECIFIED DRUGS [Concomitant]

REACTIONS (5)
  - DRUG SCREEN POSITIVE [None]
  - GASTRIC DISORDER [None]
  - NODAL ARRHYTHMIA [None]
  - OVERDOSE [None]
  - OXYGEN SATURATION DECREASED [None]
